FAERS Safety Report 5221205-6 (Version None)
Quarter: 2007Q1

REPORT INFORMATION
  Report Type: 
  Country: None (occurrence: None)
  Receive Date: 20070126
  Receipt Date: 20070119
  Transmission Date: 20070707
  Serious: Yes (Hospitalization)
  Sender: FDA-Public Use
  Company Number: US-BOEHRINGER INGELHEIM PHARMACEUTICALS, INC.-2007-BP-00923BP

PATIENT
  Sex: Female

DRUGS (1)
  1. ATROVENT [Suspect]
     Route: 055

REACTIONS (1)
  - CHEST PAIN [None]
